FAERS Safety Report 18862159 (Version 1)
Quarter: 2021Q1

REPORT INFORMATION
  Report Type: Spontaneous
  Country: FR (occurrence: FR)
  Receive Date: 20210208
  Receipt Date: 20210208
  Transmission Date: 20210420
  Serious: Yes (Life-Threatening, Hospitalization)
  Sender: FDA-Public Use
  Company Number: FR-SUN PHARMACEUTICAL INDUSTRIES LTD-2021RR-279264

PATIENT
  Age: 54 Year
  Sex: Male
  Weight: 80 kg

DRUGS (5)
  1. POSACONAZOLE [Suspect]
     Active Substance: POSACONAZOLE
     Indication: ANTIFUNGAL PROPHYLAXIS
     Dosage: UNK
     Route: 048
     Dates: start: 20201221, end: 20201226
  2. ARACYTINE [Suspect]
     Active Substance: CYTARABINE
     Indication: ACUTE MYELOID LEUKAEMIA
     Dosage: 400 MILLIGRAM, DAILY
     Route: 041
     Dates: start: 20201214, end: 20201219
  3. DAUNORUBICINE [Suspect]
     Active Substance: DAUNORUBICIN
     Indication: ACUTE MYELOID LEUKAEMIA
     Dosage: 185 MILLIGRAM, DAILY
     Route: 042
     Dates: start: 20201214, end: 20201216
  4. PARACETAMOL [Suspect]
     Active Substance: ACETAMINOPHEN
     Indication: PYREXIA
     Dosage: 3 GRAM, DAILY
     Route: 048
     Dates: start: 20201217, end: 20201226
  5. RYDAPT [Suspect]
     Active Substance: MIDOSTAURIN
     Indication: ACUTE MYELOID LEUKAEMIA
     Dosage: 100 MILLIGRAM, DAILY
     Route: 048
     Dates: start: 20201221, end: 20201226

REACTIONS (1)
  - Hepatitis acute [Recovering/Resolving]

NARRATIVE: CASE EVENT DATE: 20201226
